FAERS Safety Report 4777598-7 (Version None)
Quarter: 2005Q3

REPORT INFORMATION
  Report Type: 
  Country: None (occurrence: None)
  Receive Date: 20050921
  Receipt Date: 20050902
  Transmission Date: 20060218
  Serious: Yes (Other)
  Sender: FDA-Public Use
  Company Number: USA0509107552

PATIENT
  Sex: Female

DRUGS (5)
  1. HUMULIN R [Suspect]
  2. HUMULIN U [Suspect]
  3. TOPROL (METOPROLOL SUCCINATE) [Concomitant]
  4. ECOTRIN (ACETYLSALICYLIC ACID) [Concomitant]
  5. IMDUR [Concomitant]

REACTIONS (3)
  - DRUG EXPOSURE DURING PREGNANCY [None]
  - FOETAL DISORDER [None]
  - PREMATURE BABY [None]
